FAERS Safety Report 6292380-X (Version None)
Quarter: 2009Q3

REPORT INFORMATION
  Report Type: 
  Country: None (occurrence: None)
  Receive Date: 20090730
  Receipt Date: 20090730
  Transmission Date: 20100115
  Serious: Yes (Life-Threatening, Hospitalization)
  Sender: FDA-Public Use
  Company Number: None

PATIENT
  Age: 48 Year
  Sex: Female
  Weight: 77.1115 kg

DRUGS (1)
  1. CHANTIX [Suspect]
     Indication: SMOKING CESSATION THERAPY
     Dosage: DAILY PO
     Route: 048
     Dates: start: 20080201, end: 20080501

REACTIONS (8)
  - ABNORMAL DREAMS [None]
  - DEPRESSION [None]
  - IMPAIRED WORK ABILITY [None]
  - MENTAL DISORDER [None]
  - NIGHTMARE [None]
  - SLEEP DISORDER [None]
  - SOMNAMBULISM [None]
  - SUICIDE ATTEMPT [None]
